FAERS Safety Report 5320071-8 (Version None)
Quarter: 2007Q2

REPORT INFORMATION
  Report Type: 
  Country: None (occurrence: None)
  Receive Date: 20070509
  Receipt Date: 20070502
  Transmission Date: 20071010
  Serious: Yes (Hospitalization, Other)
  Sender: FDA-Public Use
  Company Number: US-AVENTIS-200712874GDDC

PATIENT
  Age: 74 Year
  Sex: Female
  Weight: 56 kg

DRUGS (9)
  1. LANTUS [Suspect]
     Route: 058
     Dates: start: 20061023
  2. ACTOS [Suspect]
     Route: 048
     Dates: start: 20030723
  3. GLUCOPHAGE [Suspect]
     Route: 048
     Dates: start: 20061004
  4. TARKA [Concomitant]
     Indication: HYPERTENSION
     Dosage: DOSE: 4/240
     Route: 048
     Dates: start: 20040715
  5. HYDRALAZINE HCL [Concomitant]
     Indication: HYPERTENSION
     Route: 048
     Dates: start: 20060622
  6. ATIVAN [Concomitant]
     Indication: ANXIETY
     Dosage: DOSE UNIT: 003
     Route: 048
     Dates: start: 20050622
  7. VYTORIN [Concomitant]
     Dosage: DOSE: 10/80
     Route: 048
     Dates: start: 20070215
  8. AVALIDE [Concomitant]
     Indication: HYPERTENSION
     Dosage: DOSE: 25/300
     Route: 048
     Dates: start: 20060601
  9. VERAPAMIL [Concomitant]

REACTIONS (1)
  - PALPITATIONS [None]
